FAERS Safety Report 17202237 (Version 2)
Quarter: 2020Q1

REPORT INFORMATION
  Report Type: Spontaneous
  Country: US (occurrence: US)
  Receive Date: 20191226
  Receipt Date: 20200203
  Transmission Date: 20200409
  Serious: No
  Sender: FDA-Public Use
  Company Number: US-PFIZER INC-2019551603

PATIENT
  Age: 61 Year
  Sex: Female

DRUGS (1)
  1. IBRANCE [Suspect]
     Active Substance: PALBOCICLIB
     Dosage: 125 MG, CYCLIC, (125 MG DAILY 1 DF BY MOUTH DAILY FOR 21 DAYS AND OFF FOR 7 DAYS)
     Route: 048

REACTIONS (2)
  - Arthralgia [Unknown]
  - Peripheral swelling [Unknown]
